FAERS Safety Report 6703507-7 (Version None)
Quarter: 2010Q2

REPORT INFORMATION
  Report Type: 
  Country: None (occurrence: None)
  Receive Date: 20100430
  Receipt Date: 20090217
  Transmission Date: 20101027
  Serious: Yes (Death, Other)
  Sender: FDA-Public Use
  Company Number: DE-BAYER-201020933GPV

PATIENT
  Age: 31 Year
  Sex: Female

DRUGS (6)
  1. FLUDARABINE [Suspect]
     Indication: ACUTE MYELOID LEUKAEMIA RECURRENT
     Dosage: ON TREATMENT DAYS 2-6, STARTED IN WEEK 28 (GO- FLAG-IDA SALVAGE  THERAPY)
     Route: 042
  2. CYTARABINE [Suspect]
     Indication: ACUTE MYELOID LEUKAEMIA RECURRENT
     Dosage: TOTAL DAILY DOSE: 2000 MG/M2
     Route: 042
  3. CYTARABINE [Suspect]
     Dosage: ON TREATMENT DAYS 2-6, STARTED IN WEEK 28 (GO- FLAG-IDA SALVAGE  THERAPY)
     Route: 042
  4. MITOXANTRONE [Suspect]
     Indication: ACUTE MYELOID LEUKAEMIA RECURRENT
     Dosage: ON TREATMENT DAYS 2-3 PER CYCLE (HAM-PROTOCOL), STARTED IN WEEK 22+2
  5. IDARUBICIN HCL [Suspect]
     Indication: ACUTE MYELOID LEUKAEMIA RECURRENT
     Dosage: ON TREATMENT DAYS 2-4, STARTED IN WEEK 28 (GO- FLAG-IDA SALVAGE  THERAPY)
     Route: 042
  6. GEMTUZUMAB-OZOGAMICIN [Suspect]
     Indication: ACUTE MYELOID LEUKAEMIA RECURRENT
     Dosage: ON TREATMENT DAY 1, STARTED IN WEEK 28 (GO- FLAG-IDA SALVAGE  THERAPY)

REACTIONS (8)
  - BLOOD BILIRUBIN INCREASED [None]
  - CANDIDA SEPSIS [None]
  - FEBRILE NEUTROPENIA [None]
  - PELVIC VENOUS THROMBOSIS [None]
  - PLACENTAL INSUFFICIENCY [None]
  - PLATELET FUNCTION TEST ABNORMAL [None]
  - PNEUMONIA CYTOMEGALOVIRAL [None]
  - THROMBOCYTOPENIA [None]
